FAERS Safety Report 24790488 (Version 1)
Quarter: 2024Q4

REPORT INFORMATION
  Report Type: Spontaneous
  Country: US (occurrence: US)
  Receive Date: 20241230
  Receipt Date: 20241230
  Transmission Date: 20250115
  Serious: No
  Sender: MERCK
  Company Number: US-MLMSERVICE-20241220-PI304295-00186-1

PATIENT
  Age: 42 Year
  Sex: Female

DRUGS (3)
  1. STROMECTOL [Suspect]
     Active Substance: IVERMECTIN
     Indication: Delusion of parasitosis
     Dosage: ADDITIONAL COURSES
     Route: 048
  2. PERMETHRIN [Concomitant]
     Active Substance: PERMETHRIN
     Indication: Acarodermatitis
     Dosage: ADDITIONAL COURSES
  3. PERMETHRIN [Concomitant]
     Active Substance: PERMETHRIN
     Indication: Delusion of parasitosis

REACTIONS (1)
  - Off label use [Unknown]
